FAERS Safety Report 8806950 (Version 2)
Quarter: 2014Q3

REPORT INFORMATION
  Report Type: Report from Study
  Country: US (occurrence: US)
  Receive Date: 20120925
  Receipt Date: 20140829
  Transmission Date: 20150326
  Serious: Yes (Death)
  Sender: FDA-Public Use
  Company Number: US-ROCHE-1123586

PATIENT
  Sex: Female
  Weight: 98 kg

DRUGS (4)
  1. AVASTIN [Suspect]
     Active Substance: BEVACIZUMAB
     Indication: COLON CANCER
     Route: 042
  2. LEUCOVORIN [Concomitant]
     Active Substance: LEUCOVORIN
  3. OXALIPLATIN. [Concomitant]
     Active Substance: OXALIPLATIN
  4. 5-FU [Concomitant]
     Active Substance: FLUOROURACIL

REACTIONS (1)
  - Neoplasm malignant [Fatal]
